FAERS Safety Report 12133620 (Version 1)
Quarter: 2016Q1

REPORT INFORMATION
  Report Type: Spontaneous
  Country: US (occurrence: US)
  Receive Date: 20160301
  Receipt Date: 20160301
  Transmission Date: 20160526
  Serious: Yes (Disabling, Other)
  Sender: FDA-Public Use
  Company Number: US-BAYER-2016-034120

PATIENT
  Age: 62 Year
  Sex: Female

DRUGS (1)
  1. CIPRO [Suspect]
     Active Substance: CIPROFLOXACIN HYDROCHLORIDE
     Indication: RESPIRATORY TRACT CONGESTION
     Dosage: 500 MG, BID
     Route: 048
     Dates: start: 20160120, end: 20160123

REACTIONS (6)
  - Insomnia [Unknown]
  - Drug administered to patient of inappropriate age [Unknown]
  - Arthralgia [Unknown]
  - Tendon rupture [Unknown]
  - Gait disturbance [Unknown]
  - Myalgia [Unknown]

NARRATIVE: CASE EVENT DATE: 20160121
